FAERS Safety Report 4763209-3 (Version None)
Quarter: 2005Q3

REPORT INFORMATION
  Report Type: 
  Country: None (occurrence: None)
  Receive Date: 20050902
  Receipt Date: 20050818
  Transmission Date: 20060218
  Serious: Yes (Hospitalization)
  Sender: FDA-Public Use
  Company Number: 134639

PATIENT
  Age: 32 Year
  Sex: Female
  Weight: 52.6173 kg

DRUGS (3)
  1. AVONEX [Suspect]
     Indication: MULTIPLE SCLEROSIS
     Dosage: 30 UG;QW;IM
     Route: 030
     Dates: start: 19991101
  2. AVONEX [Suspect]
     Indication: MULTIPLE SCLEROSIS
     Dosage: 30 UG;QW;IM
     Route: 030
  3. VITAMINS [Concomitant]

REACTIONS (8)
  - ABDOMINAL ADHESIONS [None]
  - ABDOMINAL PAIN [None]
  - HAEMORRHAGE [None]
  - IATROGENIC INJURY [None]
  - POST PROCEDURAL HAEMATOMA [None]
  - POST PROCEDURAL HAEMORRHAGE [None]
  - PYREXIA [None]
  - VOMITING [None]
